FAERS Safety Report 11686183 (Version 2)
Quarter: 2015Q4

REPORT INFORMATION
  Report Type: Report from Study
  Country: US (occurrence: US)
  Receive Date: 20151030
  Receipt Date: 20151218
  Transmission Date: 20160304
  Serious: Yes (Other)
  Sender: FDA-Public Use
  Company Number: PHEH2015US020908

PATIENT
  Age: 69 Year
  Sex: Female
  Weight: 57.14 kg

DRUGS (1)
  1. ENTRESTO [Suspect]
     Active Substance: SACUBITRIL\VALSARTAN
     Indication: CARDIAC FAILURE
     Dosage: 50 MG, BID
     Route: 048
     Dates: start: 20150828, end: 20150903

REACTIONS (9)
  - Feeling abnormal [Unknown]
  - Nausea [Unknown]
  - Asthenia [Recovered/Resolved]
  - Presyncope [Recovered/Resolved]
  - Malaise [Unknown]
  - Gait disturbance [Unknown]
  - Hyperhidrosis [Unknown]
  - Dizziness [Recovered/Resolved]
  - Feeling hot [Unknown]

NARRATIVE: CASE EVENT DATE: 20150830
